FAERS Safety Report 11069871 (Version 1)
Quarter: 2015Q2

REPORT INFORMATION
  Report Type: Spontaneous
  Country: None (occurrence: SE)
  Receive Date: 20150427
  Receipt Date: 20150427
  Transmission Date: 20150821
  Serious: Yes (Hospitalization)
  Sender: FDA-Public Use
  Company Number: SE-TEVA-557260ISR

PATIENT
  Age: 60 Year
  Sex: Male

DRUGS (3)
  1. ATORVASTATIN 40 MILLIGRAM PER ORAL [Suspect]
     Active Substance: ATORVASTATIN
     Route: 048
  2. METOPROLOL PER ORAL [Suspect]
     Active Substance: METOPROLOL
     Route: 048
  3. LOSARTAN PER ORAL [Suspect]
     Active Substance: LOSARTAN
     Route: 048

REACTIONS (2)
  - Toxicity to various agents [Recovered/Resolved]
  - Suicidal ideation [Recovered/Resolved]
